FAERS Safety Report 8996520 (Version 1)
Quarter: 2013Q1

REPORT INFORMATION
  Report Type: Spontaneous
  Country: US (occurrence: US)
  Receive Date: 20130104
  Receipt Date: 20130104
  Transmission Date: 20140127
  Serious: No
  Sender: FDA-Public Use
  Company Number: US-PFIZER INC-2012323831

PATIENT
  Age: 45 Year
  Sex: Male
  Weight: 92.97 kg

DRUGS (4)
  1. CAVERJECT [Suspect]
     Indication: ERECTILE DYSFUNCTION
     Dosage: 20 UG, AS NEEDED
     Dates: start: 201211, end: 2012
  2. CAVERJECT [Suspect]
     Dosage: 5 UG, AS NEEDED
     Dates: start: 2012, end: 2012
  3. CAVERJECT [Suspect]
     Dosage: 2.5 UG, AS NEEDED
     Dates: start: 2012
  4. LOVASTATIN [Concomitant]
     Indication: BLOOD CHOLESTEROL INCREASED
     Dosage: 20 MG, 1X/DAY

REACTIONS (1)
  - Erection increased [Unknown]
